FAERS Safety Report 11346564 (Version 1)
Quarter: 2015Q3

REPORT INFORMATION
  Report Type: Spontaneous
  Country: US (occurrence: US)
  Receive Date: 20150803
  Receipt Date: 20150803
  Transmission Date: 20151125
  Serious: No
  Sender: FDA-Public Use
  Company Number: US-ELI_LILLY_AND_COMPANY-US200908002190

PATIENT
  Sex: Male

DRUGS (12)
  1. ZYPREXA [Suspect]
     Active Substance: OLANZAPINE
     Dosage: 15 MG, EACH EVENING
     Dates: start: 200603
  2. ZYPREXA [Suspect]
     Active Substance: OLANZAPINE
     Dosage: 10 MG, UNK
     Dates: start: 2009
  3. NICOTINE. [Concomitant]
     Active Substance: NICOTINE
  4. ZYPREXA [Suspect]
     Active Substance: OLANZAPINE
     Dosage: 10 MG, UNK
     Dates: start: 200603
  5. ABILIFY [Concomitant]
     Active Substance: ARIPIPRAZOLE
  6. DEPAKOTE [Concomitant]
     Active Substance: DIVALPROEX SODIUM
     Dosage: 250 MG, UNK
  7. ATIVAN [Concomitant]
     Active Substance: LORAZEPAM
     Dosage: 0.5 MG, EACH EVENING
  8. ZYPREXA [Suspect]
     Active Substance: OLANZAPINE
     Dosage: 20 MG, UNK
     Dates: start: 2010
  9. ZYPREXA [Suspect]
     Active Substance: OLANZAPINE
     Dosage: 10 MG, UNK
     Dates: start: 201008
  10. ZYPREXA [Suspect]
     Active Substance: OLANZAPINE
     Indication: SCHIZOPHRENIA
     Dosage: 15 MG, UNK
     Dates: start: 200907
  11. ZYPREXA [Suspect]
     Active Substance: OLANZAPINE
     Indication: SCHIZOPHRENIA
     Dosage: 5 MG, UNK
     Dates: start: 2010
  12. INVEGA [Concomitant]
     Active Substance: PALIPERIDONE

REACTIONS (11)
  - Moaning [Not Recovered/Not Resolved]
  - Akathisia [Not Recovered/Not Resolved]
  - Speech disorder [Not Recovered/Not Resolved]
  - Gait disturbance [Unknown]
  - Movement disorder [Not Recovered/Not Resolved]
  - Confusional state [Unknown]
  - Muscle rigidity [Unknown]
  - Tardive dyskinesia [Not Recovered/Not Resolved]
  - Diabetes mellitus [Unknown]
  - Prescribed overdose [Recovered/Resolved]
  - Masked facies [Unknown]

NARRATIVE: CASE EVENT DATE: 2009
